FAERS Safety Report 9721735 (Version 1)
Quarter: 2013Q4

REPORT INFORMATION
  Report Type: Spontaneous
  Country: US (occurrence: US)
  Receive Date: 20131201
  Receipt Date: 20131201
  Transmission Date: 20140711
  Serious: No
  Sender: FDA-Public Use
  Company Number: US-ABBVIE-13P-163-1147081-00

PATIENT
  Age: 42 Year
  Sex: Male
  Weight: 75.82 kg

DRUGS (2)
  1. ANDROGEL [Suspect]
     Indication: BLOOD TESTOSTERONE DECREASED
     Dates: start: 201306, end: 201307
  2. ANDROGEL [Suspect]
     Dates: start: 201307, end: 20130912

REACTIONS (1)
  - Blood testosterone decreased [Not Recovered/Not Resolved]
